FAERS Safety Report 6019200-2 (Version None)
Quarter: 2008Q4

REPORT INFORMATION
  Report Type: 
  Country: None (occurrence: None)
  Receive Date: 20081224
  Receipt Date: 20081216
  Transmission Date: 20090506
  Serious: Yes (Other)
  Sender: FDA-Public Use
  Company Number: FR-PFIZER INC-2008157902

PATIENT

DRUGS (1)
  1. ZYVOXID [Suspect]
     Route: 048

REACTIONS (1)
  - PARAESTHESIA [None]
